FAERS Safety Report 9498065 (Version 3)
Quarter: 2013Q4

REPORT INFORMATION
  Report Type: Report from Study
  Country: JP (occurrence: JP)
  Receive Date: 20130904
  Receipt Date: 20131226
  Transmission Date: 20140711
  Serious: Yes (Other)
  Sender: FDA-Public Use
  Company Number: JP-ROCHE-1269730

PATIENT
  Age: 75 Year
  Sex: Male

DRUGS (2)
  1. RANIBIZUMAB [Suspect]
     Indication: POLYPOIDAL CHOROIDAL VASCULOPATHY
     Route: 050
     Dates: start: 20091130
  2. RANIBIZUMAB [Suspect]
     Indication: OFF LABEL USE

REACTIONS (2)
  - Retinal detachment [Unknown]
  - Ocular vascular disorder [Unknown]
